FAERS Safety Report 6857591-0 (Version None)
Quarter: 2010Q3

REPORT INFORMATION
  Report Type: 
  Country: None (occurrence: None)
  Receive Date: 20100719
  Receipt Date: 20080205
  Transmission Date: 20110219
  Serious: No
  Sender: FDA-Public Use
  Company Number: US-PFIZER INC-2008009143

PATIENT
  Sex: Female
  Weight: 63.5 kg

DRUGS (7)
  1. CHANTIX [Suspect]
     Indication: SMOKING CESSATION THERAPY
     Route: 048
     Dates: start: 20080101
  2. SYNTHROID [Concomitant]
  3. VITAMINS [Concomitant]
  4. PRILOSEC [Concomitant]
  5. LEVOXYL [Concomitant]
  6. MULTI-VITAMINS [Concomitant]
  7. PSEUDOEPHEDRINE [Concomitant]

REACTIONS (3)
  - DYSPEPSIA [None]
  - INSOMNIA [None]
  - NAUSEA [None]
